FAERS Safety Report 4798183-7 (Version None)
Quarter: 2005Q4

REPORT INFORMATION
  Report Type: 
  Country: None (occurrence: None)
  Receive Date: 20051011
  Receipt Date: 20050929
  Transmission Date: 20060501
  Serious: Yes (Hospitalization, Other)
  Sender: FDA-Public Use
  Company Number: 2005-09-1714

PATIENT
  Sex: Male

DRUGS (4)
  1. INTRON A [Suspect]
     Indication: METASTATIC RENAL CELL CARCINOMA
     Dosage: SUBCUTANEOUS
     Route: 058
  2. INTERLEUKIN-2 INJECTABLE SOLUTION [Suspect]
     Indication: METASTATIC RENAL CELL CARCINOMA
     Dosage: SUBCUTANEOUS
     Route: 058
     Dates: end: 20050329
  3. ASPIRIN [Concomitant]
  4. NITROGLYCERIN [Concomitant]

REACTIONS (11)
  - ASTHENIA [None]
  - CEREBRAL ATROPHY [None]
  - CEREBRAL INFARCTION [None]
  - CEREBROVASCULAR DISORDER [None]
  - CHEST PAIN [None]
  - FALL [None]
  - GAIT DISTURBANCE [None]
  - GRIP STRENGTH DECREASED [None]
  - HYPOTENSION [None]
  - LOSS OF CONSCIOUSNESS [None]
  - URINARY RETENTION [None]
